FAERS Safety Report 6236450-0 (Version None)
Quarter: 2009Q2

REPORT INFORMATION
  Report Type: 
  Country: None (occurrence: None)
  Receive Date: 20090619
  Receipt Date: 20090609
  Transmission Date: 20091009
  Serious: Yes (Other)
  Sender: FDA-Public Use
  Company Number: AU-PFIZER INC-2009224918

PATIENT
  Age: 85 Year

DRUGS (7)
  1. LYRICA [Suspect]
     Dosage: 75 MG, 2X/DAY
  2. LIPITOR [Concomitant]
  3. MINAX [Concomitant]
  4. TEVETEN HCT [Concomitant]
  5. ZANIDIP [Concomitant]
  6. CARTIA XT [Concomitant]
  7. LASIX [Concomitant]

REACTIONS (6)
  - DIZZINESS [None]
  - FACE INJURY [None]
  - FALL [None]
  - HEPATIC ENZYME INCREASED [None]
  - HYPERSOMNIA [None]
  - RENAL IMPAIRMENT [None]
